FAERS Safety Report 7763876-6 (Version None)
Quarter: 2011Q3

REPORT INFORMATION
  Report Type: 
  Country: None (occurrence: None)
  Receive Date: 20110919
  Receipt Date: 20110914
  Transmission Date: 20111222
  Serious: Yes (Hospitalization, Other)
  Sender: FDA-Public Use
  Company Number: 2011SP040368

PATIENT
  Age: 69 Year
  Sex: Female

DRUGS (9)
  1. VELCADE [Suspect]
     Indication: MULTIPLE MYELOMA
  2. HALOPERIDOL [Concomitant]
  3. OMEPRAZOLE [Concomitant]
  4. ONDANSETRON [Concomitant]
  5. METOCLOPRAMIDE [Concomitant]
  6. BACLOFEN [Concomitant]
  7. DEXAMETHASONE [Suspect]
     Indication: MULTIPLE MYELOMA
  8. CITALOPRAM [Concomitant]
  9. DISODIUM CLODRONATE [Concomitant]

REACTIONS (2)
  - RENAL FAILURE ACUTE [None]
  - PSYCHOTIC DISORDER [None]
